FAERS Safety Report 4495599-3 (Version None)
Quarter: 2004Q4

REPORT INFORMATION
  Report Type: 
  Country: None (occurrence: None)
  Receive Date: 20041108
  Receipt Date: 20041028
  Transmission Date: 20050328
  Serious: Yes (Hospitalization)
  Sender: FDA-Public Use
  Company Number: FR-BRISTOL-MYERS SQUIBB COMPANY-12747812

PATIENT
  Age: 47 Year
  Sex: Male

DRUGS (4)
  1. TAXOL [Suspect]
     Indication: GERM CELL CANCER
     Route: 042
     Dates: start: 20041007, end: 20041007
  2. BLEOMYCIN SULFATE [Suspect]
     Indication: GERM CELL CANCER
     Route: 042
     Dates: start: 20041007, end: 20041014
  3. VP-16 [Suspect]
     Indication: GERM CELL CANCER
     Route: 042
     Dates: start: 20041007, end: 20041011
  4. CISPLATIN [Suspect]
     Route: 042
     Dates: start: 20041007, end: 20041011

REACTIONS (1)
  - FEBRILE NEUTROPENIA [None]
